FAERS Safety Report 24047338 (Version 1)
Quarter: 2024Q3

REPORT INFORMATION
  Report Type: Spontaneous
  Country: ES (occurrence: ES)
  Receive Date: 20240703
  Receipt Date: 20240703
  Transmission Date: 20241017
  Serious: Yes (Other)
  Sender: AMGEN
  Company Number: ES-AMGEN-ESPSP2023069387

PATIENT

DRUGS (1)
  1. ADALIMUMAB [Suspect]
     Active Substance: ADALIMUMAB\ISOPROPYL ALCOHOL
     Indication: Hidradenitis
     Dosage: UNK
     Route: 065

REACTIONS (9)
  - Crohn^s disease [Unknown]
  - Adverse event [Unknown]
  - Treatment failure [Unknown]
  - Hidradenitis [Unknown]
  - Arthralgia [Unknown]
  - Oral candidiasis [Unknown]
  - Inflammation [Unknown]
  - Psoriasis [Unknown]
  - Headache [Unknown]
